FAERS Safety Report 9722016 (Version 1)
Quarter: 2013Q4

REPORT INFORMATION
  Report Type: Spontaneous
  Country: US (occurrence: US)
  Receive Date: 20131202
  Receipt Date: 20131202
  Transmission Date: 20140711
  Serious: No
  Sender: FDA-Public Use
  Company Number: US-BIOGENIDEC-2013BI078711

PATIENT
  Age: 62 Year
  Sex: Female

DRUGS (16)
  1. TECFIDERA [Suspect]
     Indication: MULTIPLE SCLEROSIS
     Route: 048
  2. TECFIDERA [Suspect]
     Indication: MULTIPLE SCLEROSIS
     Route: 048
     Dates: start: 201307
  3. NIASPAN [Concomitant]
  4. AMBIEN [Concomitant]
  5. AMLODIPINE [Concomitant]
  6. ATORVASTATIN [Concomitant]
  7. ATENOLOL [Concomitant]
  8. LISINOPRIL [Concomitant]
  9. CLONAZEPAM [Concomitant]
  10. PROVIGIL [Concomitant]
  11. ETODOLAC [Concomitant]
  12. CALCIUM 500 [Concomitant]
  13. ASPIRIN [Concomitant]
  14. VITAMIN D-3 [Concomitant]
  15. OMEGA 3 [Concomitant]
  16. ZYRTEC [Concomitant]

REACTIONS (2)
  - Abdominal discomfort [Unknown]
  - Diarrhoea [Not Recovered/Not Resolved]
